FAERS Safety Report 9763170 (Version 1)
Quarter: 2013Q4

REPORT INFORMATION
  Report Type: Spontaneous
  Country: US (occurrence: US)
  Receive Date: 20131216
  Receipt Date: 20131216
  Transmission Date: 20140711
  Serious: No
  Sender: FDA-Public Use
  Company Number: US-BIOGENIDEC-2013BI106003

PATIENT
  Sex: Male

DRUGS (11)
  1. TECFIDERA [Suspect]
     Indication: MULTIPLE SCLEROSIS
     Route: 048
     Dates: start: 201303
  2. ASPIRIN [Concomitant]
  3. SUDAFED [Concomitant]
  4. TYLENOL [Concomitant]
  5. ADVIL [Concomitant]
  6. CLARITIN [Concomitant]
  7. GLUCOSAMINE-CHONDROITIN [Concomitant]
  8. FISH OIL [Concomitant]
  9. VITAMIN B12 [Concomitant]
  10. VITAMIN D [Concomitant]
  11. NUVIGIL [Concomitant]

REACTIONS (2)
  - Hyperreflexia [Unknown]
  - Diarrhoea [Unknown]
